FAERS Safety Report 9524109 (Version 1)
Quarter: 2013Q1

REPORT INFORMATION
  Report Type: Spontaneous
  Country: US (occurrence: None)
  Receive Date: 20130314
  Receipt Date: 20130314
  Transmission Date: 20140127
  Serious: No
  Sender: FDA-Public Use
  Company Number: 1301USA014386

PATIENT
  Age: 57 Year
  Sex: Female

DRUGS (9)
  1. VICTRELIS (BOCEPREVIR) CAPSULE [Suspect]
     Indication: HEPATITIS C
     Dates: start: 20121128
  2. PEGASYS (PEGINTERFERON ALFA-2A) [Suspect]
  3. RIBASPHERE (RIBAVIRIN) [Suspect]
  4. CITALOPRAM (CITALOPRAM) [Concomitant]
  5. LEVEMIR (INSULIN DETEMIR) [Concomitant]
  6. GABAPENTIN (GABAPENTIN) [Concomitant]
  7. NOVOLOG (INSULIN ASPART) [Concomitant]
  8. PROCRIT (EPOETIN ALFA) [Concomitant]
  9. PROMACTA (ELTROMBOPAG OLAMINE) [Concomitant]

REACTIONS (2)
  - Platelet count decreased [None]
  - Red blood cell count decreased [None]
